FAERS Safety Report 7729557-X (Version None)
Quarter: 2011Q3

REPORT INFORMATION
  Report Type: 
  Country: None (occurrence: None)
  Receive Date: 20110906
  Receipt Date: 20110827
  Transmission Date: 20111222
  Serious: Yes (Other)
  Sender: FDA-Public Use
  Company Number: IT-JNJFOC-20110812827

PATIENT
  Age: 49 Year
  Sex: Female
  Weight: 60 kg

DRUGS (3)
  1. SEROQUEL [Suspect]
     Indication: SELF INJURIOUS BEHAVIOUR
     Dosage: 12 TABLETS
     Route: 048
     Dates: start: 20110827
  2. ESCITALOPRAM [Suspect]
     Indication: SELF INJURIOUS BEHAVIOUR
     Dosage: 8 TABLETS
     Route: 048
     Dates: start: 20110827
  3. TOPAMAX [Suspect]
     Indication: SELF INJURIOUS BEHAVIOUR
     Dosage: 6 TABLETS
     Route: 048
     Dates: start: 20110827

REACTIONS (3)
  - MULTIPLE DRUG OVERDOSE INTENTIONAL [None]
  - SELF INJURIOUS BEHAVIOUR [None]
  - SLUGGISHNESS [None]
